FAERS Safety Report 7144839-0 (Version None)
Quarter: 2010Q4

REPORT INFORMATION
  Report Type: 
  Country: None (occurrence: None)
  Receive Date: 20101208
  Receipt Date: 20101125
  Transmission Date: 20110411
  Serious: Yes (Hospitalization, Other)
  Sender: FDA-Public Use
  Company Number: NL-ELI_LILLY_AND_COMPANY-NL201011003453

PATIENT
  Sex: Male
  Weight: 144 kg

DRUGS (7)
  1. ZYPREXA [Suspect]
     Indication: PSYCHOTIC DISORDER
     Dosage: 10 MG, UNK
     Dates: start: 20100824, end: 20100920
  2. ZYPREXA [Suspect]
     Dosage: 15 MG, UNK
     Dates: start: 20100921, end: 20100926
  3. ZYPREXA [Suspect]
     Dosage: 12.5 MG, UNK
     Dates: start: 20100927, end: 20101010
  4. ZYPREXA [Suspect]
     Dosage: 10 MG, UNK
     Dates: start: 20101011, end: 20101115
  5. HALDOL [Concomitant]
     Dosage: 50 MG, UNK
  6. OXAZEPAM [Concomitant]
     Dosage: UNK, OTHER
  7. OXAZEPAM [Concomitant]
     Dosage: UNK, OTHER

REACTIONS (4)
  - FOOD CRAVING [None]
  - HOSPITALISATION [None]
  - INCREASED APPETITE [None]
  - WEIGHT INCREASED [None]
